FAERS Safety Report 4551886-1 (Version None)
Quarter: 2004Q4

REPORT INFORMATION
  Report Type: 
  Country: None (occurrence: None)
  Receive Date: 20041217
  Receipt Date: 20040811
  Transmission Date: 20050328
  Serious: No
  Sender: FDA-Public Use
  Company Number: 2004-BP-06780BP(0)

PATIENT
  Age: 54 Year
  Sex: Female

DRUGS (11)
  1. SPIRIVA [Suspect]
     Indication: ASTHMA
     Dosage: 18 MCG (18 MCG) , IH
     Route: 055
     Dates: start: 20040712, end: 20040814
  2. SPIRIVA [Suspect]
     Indication: CHRONIC OBSTRUCTIVE AIRWAYS DISEASE
     Dosage: 18 MCG (18 MCG) , IH
     Route: 055
     Dates: start: 20040712, end: 20040814
  3. SPIRIVA [Suspect]
  4. ADVAIR (SERETIDE MITE) [Concomitant]
  5. PROVENTIL (SALBUTAMOL SULFATE) [Concomitant]
  6. ALBUTEROL (SALVUTAMOL) [Concomitant]
  7. VERAPAMIL ER (VERAPAMIL) [Concomitant]
  8. SINGULAIR (MONTELUKAST) [Concomitant]
  9. ACETYLSALICYLIC ACID SRT [Concomitant]
  10. XANAX [Concomitant]
  11. LORATADINE [Concomitant]

REACTIONS (5)
  - ALOPECIA [None]
  - DECREASED APPETITE [None]
  - DECREASED INTEREST [None]
  - MOOD ALTERED [None]
  - SLEEP DISORDER [None]
